FAERS Safety Report 5885057-3 (Version None)
Quarter: 2008Q3

REPORT INFORMATION
  Report Type: 
  Country: None (occurrence: None)
  Receive Date: 20080915
  Receipt Date: 20080915
  Transmission Date: 20090109
  Serious: Yes (Life-Threatening, Hospitalization)
  Sender: FDA-Public Use
  Company Number: None

PATIENT
  Age: 64 Year
  Sex: Male

DRUGS (1)
  1. DIGITEK [Suspect]
     Dosage: TWICE A DAY
     Route: 048
     Dates: start: 20080412, end: 20080428

REACTIONS (9)
  - BLOOD POTASSIUM DECREASED [None]
  - DRUG TOXICITY [None]
  - HEART RATE DECREASED [None]
  - HYPOTENSION [None]
  - INCORRECT DOSE ADMINISTERED [None]
  - OXYGEN SATURATION DECREASED [None]
  - PHARMACEUTICAL PRODUCT COMPLAINT [None]
  - SOMNOLENCE [None]
  - SWELLING [None]
